FAERS Safety Report 6805890-0 (Version None)
Quarter: 2010Q2

REPORT INFORMATION
  Report Type: 
  Country: None (occurrence: None)
  Receive Date: 20100629
  Receipt Date: 20071116
  Transmission Date: 20101027
  Serious: No
  Sender: FDA-Public Use
  Company Number: US-PFIZER INC-2007097180

PATIENT
  Sex: Female
  Weight: 109.1 kg

DRUGS (3)
  1. ARTHROTEC [Suspect]
     Indication: ARTHRALGIA
     Dates: start: 20071101, end: 20071101
  2. CRESTOR [Concomitant]
  3. LISINOPRIL [Concomitant]

REACTIONS (1)
  - VAGINAL HAEMORRHAGE [None]
